FAERS Safety Report 4663843-5 (Version None)
Quarter: 2005Q2

REPORT INFORMATION
  Report Type: 
  Country: None (occurrence: None)
  Receive Date: 20050516
  Receipt Date: 20050503
  Transmission Date: 20051028
  Serious: Yes (Death)
  Sender: FDA-Public Use
  Company Number: 2005050346

PATIENT
  Sex: Male

DRUGS (1)
  1. GENOTROPIN [Suspect]
     Indication: ILL-DEFINED DISORDER
     Dosage: (0.4 MG), SUBCUTANEOUS
     Route: 058

REACTIONS (1)
  - MYOCARDIAL INFARCTION [None]
